FAERS Safety Report 5122335-X (Version None)
Quarter: 2006Q4

REPORT INFORMATION
  Report Type: 
  Country: None (occurrence: None)
  Receive Date: 20061003
  Receipt Date: 20060922
  Transmission Date: 20070319
  Serious: Yes (Other)
  Sender: FDA-Public Use
  Company Number: 230004

PATIENT
  Age: 4 Year
  Sex: Female

DRUGS (1)
  1. NUTROPIN [Suspect]
     Indication: FOETAL GROWTH RETARDATION
     Dosage: 30 UG/KG, QD, SUBCUTANEOUS
     Route: 058
     Dates: start: 20031001

REACTIONS (1)
  - PYREXIA [None]
